FAERS Safety Report 4599971-2 (Version None)
Quarter: 2005Q1

REPORT INFORMATION
  Report Type: 
  Country: None (occurrence: None)
  Receive Date: 20050303
  Receipt Date: 20050301
  Transmission Date: 20050727
  Serious: Yes (Death)
  Sender: FDA-Public Use
  Company Number: 2005-00576

PATIENT
  Sex: Male

DRUGS (1)
  1. OXYTROL [Suspect]
     Dosage: TRANSDERMAL
     Route: 062

REACTIONS (3)
  - BLADDER SPASM [None]
  - CARDIAC FAILURE [None]
  - PNEUMONIA [None]
